FAERS Safety Report 18268942 (Version 2)
Quarter: 2020Q3

REPORT INFORMATION
  Report Type: Spontaneous
  Country: US (occurrence: US)
  Receive Date: 20200915
  Receipt Date: 20200917
  Transmission Date: 20201103
  Serious: No
  Sender: FDA-Public Use
  Company Number: US-PFIZER INC-2020349608

PATIENT
  Age: 65 Year
  Sex: Male
  Weight: 83.91 kg

DRUGS (2)
  1. TESTOSTERONE. [Concomitant]
     Active Substance: TESTOSTERONE
     Indication: MALIGNANT PITUITARY TUMOUR
     Dosage: UNK
  2. GENOTROPIN MQ [Suspect]
     Active Substance: SOMATROPIN
     Indication: MALIGNANT PITUITARY TUMOUR
     Dosage: UNK [0.4 DAILY/STARTED DOSING EVERY 4 DAYS]

REACTIONS (3)
  - Malaise [Unknown]
  - Intentional product misuse [Unknown]
  - Myalgia [Unknown]

NARRATIVE: CASE EVENT DATE: 2020
